FAERS Safety Report 7792192-1 (Version None)
Quarter: 2011Q4

REPORT INFORMATION
  Report Type: 
  Country: None (occurrence: None)
  Receive Date: 20111003
  Receipt Date: 20111003
  Transmission Date: 20120403
  Serious: Yes (Other)
  Sender: FDA-Public Use
  Company Number: None

PATIENT
  Sex: Male
  Weight: 38.555 kg

DRUGS (1)
  1. AZITHROMYCIN [Suspect]
     Indication: UPPER RESPIRATORY TRACT INFECTION
     Dosage: 1ST DOSE 2 TABLETS THEN 1 TAB
     Route: 048
     Dates: start: 20111001, end: 20111001

REACTIONS (3)
  - INCORRECT DOSE ADMINISTERED [None]
  - MUSCLE SPASMS [None]
  - PAIN [None]
